FAERS Safety Report 7210308-2 (Version None)
Quarter: 2010Q4

REPORT INFORMATION
  Report Type: 
  Country: None (occurrence: None)
  Receive Date: 20101223
  Receipt Date: 20101216
  Transmission Date: 20110411
  Serious: Yes (Disabling)
  Sender: FDA-Public Use
  Company Number: TPA2010A06314

PATIENT
  Sex: Female

DRUGS (1)
  1. PREVACID [Suspect]
     Dosage: PER ORAL
     Route: 048

REACTIONS (2)
  - DISABILITY [None]
  - HYPERTENSION [None]
